FAERS Safety Report 19109005 (Version 1)
Quarter: 2021Q2

REPORT INFORMATION
  Report Type: Spontaneous
  Country: NL (occurrence: NL)
  Receive Date: 20210408
  Receipt Date: 20210408
  Transmission Date: 20210717
  Serious: Yes (Hospitalization)
  Sender: FDA-Public Use
  Company Number: NL-TEVA-2021-NL-1898444

PATIENT
  Age: 62 Year
  Sex: Female
  Weight: 69 kg

DRUGS (6)
  1. DICLOFENAC?NATRIUM ZETPIL  50MG / BRAND NAME NOT SPECIFIED [Concomitant]
     Dosage: SUPP 1X50MG:THERAPY START DATE :THERAPY END DATE :ASKU
  2. OXYCODON CAPSULE 5MG / OXYNORM CAPSULE 5MG [Suspect]
     Active Substance: OXYCODONE
     Indication: PROCEDURAL PAIN
     Dosage: 5 MG (MILLIGRAM),
     Dates: start: 202103, end: 20210305
  3. NADROPARINE INJVLST  9500IE/ML / FRAXIPARINE INJVLST 2850IE/0,3ML (950 [Concomitant]
     Dosage: 1X2850 IE:THERAPY START DATE :THERAPY END DATE :ASKU
  4. MACROGOL/ZOUTEN PDR V DRANK (MOVIC/MOLAX/LAXT/GEN) / MOVICOLON POEDER [Concomitant]
     Dosage: POWDER FOR DRINK:THERAPY START DATE :THERAPY END DATE :ASKU
  5. PARACETAMOL TABLET  500MG / BRAND NAME NOT SPECIFIED [Concomitant]
     Dosage: 4X1G:THERAPY START DATE :THERAPY END DATE :ASKU
  6. OXYCODON CAPSULE 10MG / BRAND NAME NOT SPECIFIED [Suspect]
     Active Substance: OXYCODONE
     Indication: PROCEDURAL PAIN
     Dosage: 20 MILLIGRAM DAILY; 2X1
     Dates: start: 20210303, end: 20210306

REACTIONS (5)
  - Peripheral coldness [Recovered/Resolved]
  - Dizziness [Recovered/Resolved]
  - Nausea [Recovered/Resolved]
  - Hyperhidrosis [Recovered/Resolved]
  - Pallor [Recovered/Resolved]

NARRATIVE: CASE EVENT DATE: 20210303
